FAERS Safety Report 12330493 (Version 1)
Quarter: 2016Q2

REPORT INFORMATION
  Report Type: Spontaneous
  Country: US (occurrence: US)
  Receive Date: 20160504
  Receipt Date: 20160504
  Transmission Date: 20160815
  Serious: No
  Sender: FDA-Public Use
  Company Number: US-SUN PHARMACEUTICAL INDUSTRIES LTD-2015US-110305

PATIENT
  Sex: Female

DRUGS (2)
  1. IBUPROFEN PSEUDOEPHEDRINE HYDROCHLORIDE [Suspect]
     Active Substance: IBUPROFEN\PSEUDOEPHEDRINE HYDROCHLORIDE
     Indication: PRODUCT USED FOR UNKNOWN INDICATION
     Dosage: 1 DF, EVERY 4-6 HOURS
     Route: 065
     Dates: start: 201510
  2. IBUPROFEN PSEUDOEPHEDRINE HYDROCHLORIDE [Suspect]
     Active Substance: IBUPROFEN\PSEUDOEPHEDRINE HYDROCHLORIDE
     Dosage: UNK
     Route: 065
     Dates: start: 201510

REACTIONS (9)
  - Pain in extremity [Unknown]
  - Abdominal discomfort [Recovered/Resolved]
  - Dry skin [Not Recovered/Not Resolved]
  - Arthralgia [Unknown]
  - Nasal dryness [Not Recovered/Not Resolved]
  - Underdose [Unknown]
  - Nasal discomfort [Not Recovered/Not Resolved]
  - Pain [Unknown]
  - Epistaxis [Unknown]

NARRATIVE: CASE EVENT DATE: 2015
